FAERS Safety Report 4818351-5 (Version None)
Quarter: 2005Q4

REPORT INFORMATION
  Report Type: 
  Country: None (occurrence: None)
  Receive Date: 20051031
  Receipt Date: 20051019
  Transmission Date: 20060501
  Serious: Yes (Other)
  Sender: FDA-Public Use
  Company Number: 2005JP002038

PATIENT
  Age: 49 Year
  Sex: Female

DRUGS (6)
  1. PROGRAF [Suspect]
     Indication: RENAL TRANSPLANT
  2. STEROID [Concomitant]
  3. ANTILYMPHOCYTE GLOBULIN (ANTILYMPHOCYTE IMMUNOGLOBULIN (HORSE) ) [Concomitant]
  4. MONOCLONAL ANTIBODIES [Concomitant]
  5. PREDNISONE [Concomitant]
  6. MYCOPHENOLATE MOFETIL (MYCOPHENOLATE MOFETIL) [Concomitant]

REACTIONS (11)
  - BLOOD CREATININE INCREASED [None]
  - BRAIN ABSCESS [None]
  - CYTOMEGALOVIRUS CHORIORETINITIS [None]
  - CYTOMEGALOVIRUS INFECTION [None]
  - DIFFUSE LARGE B-CELL LYMPHOMA [None]
  - EPSTEIN-BARR VIRUS INFECTION [None]
  - GAIT DISTURBANCE [None]
  - LETHARGY [None]
  - LYMPHOPROLIFERATIVE DISORDER [None]
  - RENAL MASS [None]
  - TOXOPLASMOSIS [None]
